FAERS Safety Report 8977724 (Version 1)
Quarter: 2012Q4

REPORT INFORMATION
  Report Type: Report from Study
  Country: US (occurrence: US)
  Receive Date: 20121220
  Receipt Date: 20121220
  Transmission Date: 20130627
  Serious: Yes (Hospitalization)
  Sender: FDA-Public Use
  Company Number: US-ABBOTT-12P-163-0897691-00

PATIENT
  Age: 69 None
  Sex: Female

DRUGS (8)
  1. HUMIRA 40 MG/0.8 ML PEN [Suspect]
     Indication: RHEUMATOID ARTHRITIS
     Route: 058
     Dates: start: 201108
  2. WELLBUTRIN [Concomitant]
     Indication: DEPRESSION
  3. CITALAPRAM [Concomitant]
     Indication: DEPRESSION
  4. DIOVAN [Concomitant]
     Indication: HYPERTENSION
  5. MELOXICAM [Concomitant]
     Indication: OSTEOARTHRITIS
  6. PLAQUENIL [Concomitant]
     Indication: RHEUMATOID ARTHRITIS
  7. METHOTREXATE [Concomitant]
     Indication: RHEUMATOID ARTHRITIS
     Dosage: 6 tabs on Saturday
  8. BONIVA [Concomitant]
     Indication: PRODUCT USED FOR UNKNOWN INDICATION

REACTIONS (10)
  - Osteoarthritis [Unknown]
  - Cervical vertebral fracture [Not Recovered/Not Resolved]
  - Arthralgia [Recovering/Resolving]
  - Rheumatoid arthritis [Not Recovered/Not Resolved]
  - Rheumatoid arthritis [Unknown]
  - Osteoarthritis [Unknown]
  - Fall [Recovered/Resolved]
  - Contusion [Unknown]
  - Skeletal injury [Unknown]
  - Cervical vertebral fracture [Not Recovered/Not Resolved]
